FAERS Safety Report 4766428-5 (Version None)
Quarter: 2005Q3

REPORT INFORMATION
  Report Type: 
  Country: None (occurrence: None)
  Receive Date: 20050912
  Receipt Date: 20050830
  Transmission Date: 20060218
  Serious: Yes (Other)
  Sender: FDA-Public Use
  Company Number: US-ROCHE-416260

PATIENT
  Sex: Male

DRUGS (7)
  1. PEGASYS [Suspect]
     Indication: HEPATITIS C
     Dosage: TAKEN WEEKLY.
     Route: 058
     Dates: start: 20050311, end: 20050819
  2. COPEGUS [Suspect]
     Indication: HEPATITIS C
     Route: 048
     Dates: start: 20050311, end: 20050819
  3. GLUCOPHAGE [Concomitant]
     Route: 048
  4. SKELAXIN [Concomitant]
     Route: 048
  5. LISINOPRIL [Concomitant]
     Indication: HYPERTENSION
     Route: 048
  6. NEUPOGEN [Concomitant]
     Dosage: TAKEN WEEKLY.
  7. TYLENOL [Concomitant]

REACTIONS (5)
  - NEUTROPHIL COUNT DECREASED [None]
  - OPTIC NERVE INFARCTION [None]
  - RETINAL HAEMORRHAGE [None]
  - VEIN DISORDER [None]
  - VISION BLURRED [None]
